FAERS Safety Report 6813059-9 (Version None)
Quarter: 2010Q3

REPORT INFORMATION
  Report Type: 
  Country: None (occurrence: None)
  Receive Date: 20100701
  Receipt Date: 20100623
  Transmission Date: 20110219
  Serious: Yes (Death, Hospitalization)
  Sender: FDA-Public Use
  Company Number: US-AMGEN-KDC414153

PATIENT
  Sex: Female
  Weight: 60 kg

DRUGS (10)
  1. ROMIPLOSTIM [Suspect]
     Indication: MYELODYSPLASTIC SYNDROME
     Route: 058
     Dates: start: 20091222
  2. ASPIRIN [Concomitant]
  3. DEFEROXAMINE MESYLATE [Concomitant]
  4. CEFUROXIME [Concomitant]
     Route: 048
  5. PREDNISONE TAB [Concomitant]
     Route: 048
  6. PENTASA [Concomitant]
     Route: 048
  7. MULTI-VITAMINS [Concomitant]
     Route: 048
  8. CALCIUM WITH VITAMIN D [Concomitant]
     Route: 048
  9. VITAMIN B6 [Concomitant]
     Route: 048
  10. FOLIC ACID [Concomitant]
     Route: 048

REACTIONS (3)
  - ISCHAEMIC STROKE [None]
  - PULMONARY ARTERIOPATHY [None]
  - PULMONARY HILUM MASS [None]
